FAERS Safety Report 19918133 (Version 4)
Quarter: 2021Q4

REPORT INFORMATION
  Report Type: Report from Study
  Country: CA (occurrence: CA)
  Receive Date: 20211004
  Receipt Date: 20211122
  Transmission Date: 20220303
  Serious: No
  Sender: FDA-Public Use
  Company Number: CA-TAKEDA-2021TUS060791

PATIENT
  Age: 85 Year
  Sex: Female

DRUGS (15)
  1. TEDUGLUTIDE [Suspect]
     Active Substance: TEDUGLUTIDE
     Indication: Short-bowel syndrome
     Dosage: 2.8 MILLIGRAM, QD
     Route: 065
     Dates: start: 20171018, end: 20201001
  2. TEDUGLUTIDE [Suspect]
     Active Substance: TEDUGLUTIDE
     Indication: Short-bowel syndrome
     Dosage: 2.8 MILLIGRAM, QD
     Route: 065
     Dates: start: 20171018, end: 20201001
  3. TEDUGLUTIDE [Suspect]
     Active Substance: TEDUGLUTIDE
     Indication: Short-bowel syndrome
     Dosage: 2.8 MILLIGRAM, QD
     Route: 065
     Dates: start: 20171018, end: 20201001
  4. TEDUGLUTIDE [Suspect]
     Active Substance: TEDUGLUTIDE
     Indication: Short-bowel syndrome
     Dosage: 2.8 MILLIGRAM, QD
     Route: 065
     Dates: start: 20171018, end: 20201001
  5. TEDUGLUTIDE [Suspect]
     Active Substance: TEDUGLUTIDE
     Dosage: 1.33 MILLIGRAM, QD
     Route: 065
     Dates: start: 20201001
  6. TEDUGLUTIDE [Suspect]
     Active Substance: TEDUGLUTIDE
     Dosage: 1.33 MILLIGRAM, QD
     Route: 065
     Dates: start: 20201001
  7. TEDUGLUTIDE [Suspect]
     Active Substance: TEDUGLUTIDE
     Dosage: 1.33 MILLIGRAM, QD
     Route: 065
     Dates: start: 20201001
  8. TEDUGLUTIDE [Suspect]
     Active Substance: TEDUGLUTIDE
     Dosage: 1.33 MILLIGRAM, QD
     Route: 065
     Dates: start: 20201001
  9. CODEINE [Concomitant]
     Active Substance: CODEINE
     Indication: Gastrointestinal stoma complication
     Dosage: 7.50 MILLIGRAM, BID
     Route: 048
     Dates: start: 20201104, end: 20210106
  10. CODEINE [Concomitant]
     Active Substance: CODEINE
     Dosage: 15 MILLIGRAM, BID
     Route: 048
     Dates: start: 20210106
  11. VITAMIN A [Concomitant]
     Active Substance: VITAMIN A
     Indication: Vitamin A deficiency
     Dosage: 10000 INTERNATIONAL UNIT, QD
     Route: 048
     Dates: start: 20201104, end: 20210120
  12. SODIUM CHLORIDE [Concomitant]
     Active Substance: SODIUM CHLORIDE
     Indication: Dehydration
     Dosage: 1000 MILLIGRAM, PRN
     Route: 048
     Dates: start: 20201001, end: 20201104
  13. VITAMIN D [Concomitant]
     Active Substance: VITAMIN D NOS
     Indication: Vitamin D deficiency
     Dosage: 10000 INTERNATIONAL UNIT, QD
     Route: 065
  14. VITAMIN B12 [Concomitant]
     Active Substance: CYANOCOBALAMIN
     Indication: Vitamin B12 deficiency
     Dosage: 1000 MICROGRAM, MONTHLY
     Route: 065
  15. OMEPRAZOLE [Concomitant]
     Active Substance: OMEPRAZOLE
     Indication: Gastrooesophageal reflux disease
     Dosage: 20 MILLIGRAM, QD
     Route: 065

REACTIONS (1)
  - Intraductal papillary mucinous neoplasm [Not Recovered/Not Resolved]

NARRATIVE: CASE EVENT DATE: 20190524
